FAERS Safety Report 21040103 (Version 2)
Quarter: 2022Q3

REPORT INFORMATION
  Report Type: Report from Study
  Country: US (occurrence: US)
  Receive Date: 20220704
  Receipt Date: 20220923
  Transmission Date: 20221027
  Serious: No
  Sender: FDA-Public Use
  Company Number: US-NOVARTISTESTPH-NVSC2022US150507

PATIENT
  Sex: Female

DRUGS (1)
  1. COSENTYX [Suspect]
     Active Substance: SECUKINUMAB
     Indication: Ankylosing spondylitis
     Dosage: 300 MG, QMO(OINTMENT)
     Route: 058

REACTIONS (4)
  - Feeling abnormal [Unknown]
  - Fatigue [Recovering/Resolving]
  - Arthralgia [Recovering/Resolving]
  - Therapeutic product effect decreased [Recovering/Resolving]
